FAERS Safety Report 12340953 (Version 3)
Quarter: 2016Q3

REPORT INFORMATION
  Report Type: Spontaneous
  Country: US (occurrence: US)
  Receive Date: 20160506
  Receipt Date: 20160715
  Transmission Date: 20161109
  Serious: Yes (Other)
  Sender: FDA-Public Use
  Company Number: US-PFIZER INC-2016247262

PATIENT
  Age: 26 Year
  Sex: Female
  Weight: 104 kg

DRUGS (3)
  1. ADDERALL [Concomitant]
     Active Substance: AMPHETAMINE ASPARTATE\AMPHETAMINE SULFATE\DEXTROAMPHETAMINE SACCHARATE\DEXTROAMPHETAMINE SULFATE
     Indication: ATTENTION DEFICIT/HYPERACTIVITY DISORDER
     Dosage: 25 MG, 1X/DAY
     Dates: start: 2008
  2. SINGULAIR [Concomitant]
     Active Substance: MONTELUKAST SODIUM
     Indication: HYPERSENSITIVITY
     Dosage: 10 MG, 1X/DAY
     Dates: start: 2006
  3. VENLAFAXINE HCL [Suspect]
     Active Substance: VENLAFAXINE HYDROCHLORIDE
     Indication: DEPRESSION
     Dosage: 150 MG, DAILY
     Route: 048

REACTIONS (12)
  - Suicidal ideation [Unknown]
  - Sleep disorder [Unknown]
  - Vomiting [Unknown]
  - Condition aggravated [Unknown]
  - Depression [Unknown]
  - Drug ineffective [Recovered/Resolved]
  - Mood altered [Unknown]
  - Withdrawal syndrome [Unknown]
  - Headache [Unknown]
  - Pyrexia [Unknown]
  - Hyperhidrosis [Unknown]
  - Abdominal discomfort [Unknown]
